FAERS Safety Report 9209779 (Version 1)
Quarter: 2013Q2

REPORT INFORMATION
  Report Type: Spontaneous
  Country: US (occurrence: US)
  Receive Date: 20130404
  Receipt Date: 20130404
  Transmission Date: 20140414
  Serious: No
  Sender: FDA-Public Use
  Company Number: US-ASTELLAS-2013US000453

PATIENT
  Age: 71 Year
  Sex: Female

DRUGS (15)
  1. MYRBETRIQ [Suspect]
     Indication: INCONTINENCE
     Dosage: 25 MG, UID/QD
     Route: 048
     Dates: start: 20130101
  2. VESICARE [Concomitant]
     Indication: BLADDER DISORDER
     Dosage: 10 MG, UNKNOWN/D
     Route: 048
  3. OXYBUTYNIN [Concomitant]
     Indication: PRODUCT USED FOR UNKNOWN INDICATION
     Dosage: UNK
     Route: 065
  4. ASPIRIN [Concomitant]
     Indication: CARDIAC DISORDER
     Dosage: 325 MG, UID/QD
     Route: 065
  5. PLETAAL [Concomitant]
     Indication: RAYNAUD^S PHENOMENON
     Dosage: 100 MG, BID
     Route: 065
  6. CLONIDINE [Concomitant]
     Indication: HYPERTENSION
     Dosage: 0.1 MG, BID
     Route: 065
  7. CLARITIN-D [Concomitant]
     Indication: SEASONAL ALLERGY
     Dosage: UNK MG, UNKNOWN/D
     Route: 065
  8. FLEXERIL                           /00428402/ [Concomitant]
     Indication: MUSCLE RELAXANT THERAPY
     Dosage: 10 MG, UNKNOWN/D
     Route: 065
  9. FOLIC ACID [Concomitant]
     Indication: VITAMIN SUPPLEMENTATION
     Dosage: 1 MG, UID/QD
     Route: 065
  10. MELOXICAM [Concomitant]
     Indication: RHEUMATOID ARTHRITIS
     Dosage: 7.5 MG, BID
     Route: 065
  11. METHOTREXATE [Concomitant]
     Indication: RHEUMATOID ARTHRITIS
     Dosage: 25 MG, WEEKLY ON WED.
     Route: 065
  12. OMEPRAZOLE [Concomitant]
     Indication: REFLUX GASTRITIS
     Dosage: 20 MG, BID
     Route: 065
  13. PAXIL [Concomitant]
     Indication: ANXIETY
     Dosage: 40 MG, UID/QD
     Route: 065
  14. REMICADE [Concomitant]
     Indication: RHEUMATOID ARTHRITIS
     Dosage: 800 MG, UID/QD
     Route: 065
  15. SIMVASTATIN [Concomitant]
     Indication: BLOOD CHOLESTEROL
     Dosage: 20 MG, UID/QD
     Route: 065

REACTIONS (4)
  - Vision blurred [Unknown]
  - Lacrimation increased [Unknown]
  - Dizziness [Unknown]
  - Fatigue [Unknown]
